FAERS Safety Report 7803417-8 (Version None)
Quarter: 2011Q4

REPORT INFORMATION
  Report Type: 
  Country: None (occurrence: None)
  Receive Date: 20111007
  Receipt Date: 20110301
  Transmission Date: 20120403
  Serious: No
  Sender: FDA-Public Use
  Company Number: US-BAYER-2011-019365

PATIENT
  Age: 53 Year
  Sex: Male
  Weight: 97.506 kg

DRUGS (30)
  1. VARENICLINE [Concomitant]
     Indication: EX-TOBACCO USER
     Dosage: 0.5 MG, BID
  2. CLONAZEPAM [Concomitant]
     Indication: ANXIETY
     Dosage: 0.5 MG, HS
  3. MESALAMINE [Concomitant]
     Indication: CROHN'S DISEASE
     Dosage: 500 MG, TID
  4. FISH OIL [Concomitant]
     Indication: BLOOD CHOLESTEROL INCREASED
     Dosage: UNK
  5. INSULIN GLARGINE [Concomitant]
     Indication: TYPE 1 DIABETES MELLITUS
     Dosage: 25 UNITS AT HOUR OF SLEEP
  6. UNKNOWN OTHER MEDICATIONS [Concomitant]
     Dosage: UNK
  7. HUMIRA [Suspect]
     Indication: ANKYLOSING SPONDYLITIS
     Dosage: 40 MG, ONCE IN TWO WEEKS
     Route: 058
     Dates: start: 20101018
  8. DOCUSATE SODIUM [Concomitant]
     Indication: CONSTIPATION PROPHYLAXIS
     Dosage: 100 MG, QD
  9. GABAPENTIN [Concomitant]
     Indication: NEUROPATHY PERIPHERAL
     Dosage: 300 MG, 1 AM AND NOON, 2 AT BEDTIME
  10. CINNAMOMUM VERUM [Concomitant]
     Indication: DIABETES MELLITUS
     Dosage: 1000 MG, QD
  11. MORPHINE [Concomitant]
     Indication: NEUROPATHY PERIPHERAL
     Dosage: 10 MG, BID
  12. ALBUTEROL [Concomitant]
     Indication: ASTHMA
     Dosage: UNK UNK, PRN
     Route: 045
  13. SULFAMETHOPRIM [Concomitant]
     Indication: SINUSITIS
     Dosage: 800/160MG
  14. DOXAZOSIN MESYLATE [Concomitant]
     Indication: PROSTATIC DISORDER
     Dosage: 4 MG, QD
  15. FERROUS GLYCINE SULFATE [Concomitant]
     Indication: ANAEMIA
     Dosage: 27 MG, BID
  16. MULTI-VITAMIN [Concomitant]
  17. INSULIN ASPART [Concomitant]
     Indication: TYPE 1 DIABETES MELLITUS
  18. CIPROFLOXACIN [Suspect]
     Dosage: UNK
     Dates: start: 20110111, end: 20110119
  19. CLONAZEPAM [Concomitant]
     Indication: SLEEP DISORDER
  20. CALCIUM WITH VITAMIN D [Concomitant]
  21. FLUNISOLIDE [Concomitant]
     Indication: MULTIPLE ALLERGIES
  22. MORPHINE [Concomitant]
     Indication: PAIN
  23. UNKNOWN BIPOLAR MEDICATION [Concomitant]
     Indication: BIPOLAR DISORDER
     Dosage: UNK
  24. FENOFIBRATE [Concomitant]
     Indication: BLOOD CHOLESTEROL INCREASED
     Dosage: 160 MG, UNK
  25. CETIRIZINE HCL [Concomitant]
     Indication: MULTIPLE ALLERGIES
     Dosage: 10 MG, QD
  26. LEVOTHYROXINE SODIUM [Concomitant]
     Indication: HYPOTHYROIDISM
     Dosage: 100 ?G, QD
  27. HUMIRA [Suspect]
     Indication: CROHN'S DISEASE
  28. ASCORBIC ACID [Concomitant]
     Dosage: 500 MG, QD
  29. ASPIRIN [Concomitant]
     Indication: CARDIAC DISORDER
     Dosage: 325 MG, QD
  30. BUPROPION HCL [Concomitant]
     Indication: BIPOLAR DISORDER
     Dosage: 100 MG, QD

REACTIONS (1)
  - MALAISE [None]
